FAERS Safety Report 24756727 (Version 1)
Quarter: 2024Q4

REPORT INFORMATION
  Report Type: Spontaneous
  Country: FR (occurrence: FR)
  Receive Date: 20241220
  Receipt Date: 20241220
  Transmission Date: 20250114
  Serious: Yes (Hospitalization, Other)
  Sender: SANOFI AVENTIS
  Company Number: None

PATIENT
  Age: 58 Year
  Sex: Male

DRUGS (2)
  1. RIFATER [Suspect]
     Active Substance: ISONIAZID\PYRAZINAMIDE\RIFAMPIN
     Indication: Pulmonary tuberculosis
     Dosage: 6 DF, QD (RIFAMPICIN: 720 MG/DAY ISONIAZID: 300 MG/DAY PYRAZINAMIDE: 1.8 G/DAY)
     Route: 048
     Dates: start: 20240530, end: 20240712
  2. ISONIAZID\RIFAMPIN [Suspect]
     Active Substance: ISONIAZID\RIFAMPIN
     Indication: Pulmonary tuberculosis
     Dosage: 900 MG (RIFAMPICIN: 600 MG/DAY ISONIAZID: 300 MG/DAY)
     Route: 048
     Dates: start: 20240712, end: 20240814

REACTIONS (2)
  - Haemolytic anaemia [Recovering/Resolving]
  - Neutropenia [Recovered/Resolved]

NARRATIVE: CASE EVENT DATE: 20240814
